FAERS Safety Report 13689666 (Version 1)
Quarter: 2017Q2

REPORT INFORMATION
  Report Type: Report from Study
  Country: ZA (occurrence: ZA)
  Receive Date: 20170626
  Receipt Date: 20170626
  Transmission Date: 20170830
  Serious: Yes (Hospitalization)
  Sender: FDA-Public Use
  Company Number: ZA-TEVA-780255ISR

PATIENT
  Age: 55 Year
  Sex: Male

DRUGS (6)
  1. SIMVASTATIN. [Concomitant]
     Active Substance: SIMVASTATIN
  2. BIO-ATENOLOL [Concomitant]
  3. COPAXONE [Suspect]
     Active Substance: GLATIRAMER ACETATE
     Indication: MULTIPLE SCLEROSIS
     Dosage: 20 MILLIGRAM/MILLILITERS DAILY;
     Route: 058
     Dates: start: 20170612
  4. GLICLAZIDE [Concomitant]
     Active Substance: GLICLAZIDE
  5. BACLOFEN. [Concomitant]
     Active Substance: BACLOFEN
  6. TREPILINE [Concomitant]
     Active Substance: AMITRIPTYLINE

REACTIONS (2)
  - Confusional state [Unknown]
  - Fall [Unknown]

NARRATIVE: CASE EVENT DATE: 20170613
